FAERS Safety Report 17842306 (Version 1)
Quarter: 2020Q2

REPORT INFORMATION
  Report Type: Spontaneous
  Country: US (occurrence: US)
  Receive Date: 20200529
  Receipt Date: 20200529
  Transmission Date: 20200714
  Serious: No
  Sender: FDA-Public Use
  Company Number: US-009507513-2005USA005778

PATIENT
  Sex: Female
  Weight: 49.89 kg

DRUGS (3)
  1. MIRTAZAPINE. [Suspect]
     Active Substance: MIRTAZAPINE
     Indication: DEPRESSION
     Dosage: UNK
     Route: 048
     Dates: start: 2005, end: 2005
  2. MIRTAZAPINE. [Suspect]
     Active Substance: MIRTAZAPINE
     Indication: ANXIETY
  3. XANAX [Concomitant]
     Active Substance: ALPRAZOLAM

REACTIONS (1)
  - Agitation [Unknown]

NARRATIVE: CASE EVENT DATE: 2005
